FAERS Safety Report 6551331-0 (Version None)
Quarter: 2010Q1

REPORT INFORMATION
  Report Type: 
  Country: None (occurrence: None)
  Receive Date: 20100120
  Receipt Date: 20100115
  Transmission Date: 20100710
  Serious: Yes (Death)
  Sender: FDA-Public Use
  Company Number: 2010SP003340

PATIENT
  Age: 54 Year
  Sex: Male

DRUGS (1)
  1. TEMODAL [Suspect]
     Indication: MALIGNANT MELANOMA
     Dosage: 100 MG;TID
     Dates: start: 20091123

REACTIONS (1)
  - DEATH [None]
